FAERS Safety Report 21602213 (Version 1)
Quarter: 2022Q4

REPORT INFORMATION
  Report Type: Spontaneous
  Country: FR (occurrence: FR)
  Receive Date: 20221116
  Receipt Date: 20221116
  Transmission Date: 20230113
  Serious: Yes (Other)
  Sender: FDA-Public Use
  Company Number: None

PATIENT
  Age: 57 Year
  Sex: Female
  Weight: 76 kg

DRUGS (14)
  1. FILGRASTIM [Suspect]
     Active Substance: FILGRASTIM
     Indication: Rectal adenocarcinoma
     Dosage: 1 DOSAGE FORM, QD (30 MU/0.5 ML)
     Route: 058
     Dates: start: 20220924, end: 20220927
  2. FILGRASTIM [Suspect]
     Active Substance: FILGRASTIM
     Dosage: 1 DOSAGE FORM, QD (30 MU/0.5 ML)
     Route: 058
     Dates: start: 20221006, end: 20221008
  3. IRINOTECAN [Suspect]
     Active Substance: IRINOTECAN
     Indication: Rectal adenocarcinoma
     Dosage: 240 MG, (TOTAL)
     Route: 042
     Dates: start: 20220921, end: 20220921
  4. IRINOTECAN [Suspect]
     Active Substance: IRINOTECAN
     Dosage: 240 MG, (TOTAL)
     Route: 042
     Dates: start: 20221005, end: 20221005
  5. IRINOTECAN [Suspect]
     Active Substance: IRINOTECAN
     Dosage: 240 MG, (TOTAL)
     Route: 042
     Dates: start: 20221025, end: 20221025
  6. OXALIPLATIN [Suspect]
     Active Substance: OXALIPLATIN
     Indication: Rectal adenocarcinoma
     Dosage: 150 MG (TOTAL)
     Route: 042
     Dates: start: 20220921, end: 20220921
  7. OXALIPLATIN [Suspect]
     Active Substance: OXALIPLATIN
     Dosage: 150 MG (TOTAL)
     Route: 042
     Dates: start: 20221005, end: 20221005
  8. FLUOROURACIL [Suspect]
     Active Substance: FLUOROURACIL
     Indication: Rectal adenocarcinoma
     Dosage: 2950 MG (TOTAL) (CONCESSION DOSE 30 PERCENT INFUSEUR SUR 48H)
     Route: 042
     Dates: start: 20220921, end: 20220923
  9. FLUOROURACIL [Suspect]
     Active Substance: FLUOROURACIL
     Dosage: 2950 MG (TOTAL) (CONCESSION DOSE 30 PERCENT INFUSEUR SUR 48H)
     Route: 042
     Dates: start: 20221005, end: 20221007
  10. FLUOROURACIL [Suspect]
     Active Substance: FLUOROURACIL
     Dosage: 2950 MG (TOTAL) (CONCESSION DOSE 30 PERCENT INFUSEUR SUR 48H)
     Route: 042
     Dates: start: 20221025, end: 20221027
  11. DOLIPRANE [Concomitant]
     Active Substance: ACETAMINOPHEN
     Indication: Pain
     Dosage: 1 G TOUTES LES 6H SI DOULEURS
     Route: 048
  12. LEVOLEUCOVORIN CALCIUM [Concomitant]
     Active Substance: LEVOLEUCOVORIN CALCIUM
     Indication: Rectal adenocarcinoma
     Dosage: 350 MG (TOTAL)
     Route: 042
     Dates: start: 20220921, end: 20220921
  13. LEVOLEUCOVORIN CALCIUM [Concomitant]
     Active Substance: LEVOLEUCOVORIN CALCIUM
     Dosage: 350 MG (TOTAL)
     Route: 042
     Dates: start: 20221005, end: 20221005
  14. LEVOLEUCOVORIN CALCIUM [Concomitant]
     Active Substance: LEVOLEUCOVORIN CALCIUM
     Dosage: 350 MG (TOTAL)
     Route: 042
     Dates: start: 20221025, end: 20221025

REACTIONS (1)
  - Hepatic cytolysis [Recovering/Resolving]

NARRATIVE: CASE EVENT DATE: 20221004
